FAERS Safety Report 8329694-5 (Version None)
Quarter: 2012Q2

REPORT INFORMATION
  Report Type: 
  Country: None (occurrence: None)
  Receive Date: 20120502
  Receipt Date: 20120423
  Transmission Date: 20120825
  Serious: Yes (Hospitalization)
  Sender: FDA-Public Use
  Company Number: JP-GLAXOSMITHKLINE-B0528823A

PATIENT
  Sex: Male

DRUGS (14)
  1. ZANTAC [Concomitant]
     Indication: DUODENAL ULCER
     Dosage: 300MG PER DAY
     Route: 048
  2. LENDORMIN [Concomitant]
     Indication: INSOMNIA
     Dosage: .25MG PER DAY
     Route: 048
  3. MILNACIPRAN HYDROCHLORIDE [Concomitant]
     Route: 048
  4. MAGNESIUM OXIDE [Concomitant]
     Indication: CONSTIPATION
     Dosage: 1980MG PER DAY
     Route: 048
  5. FLUVOXAMINE MALEATE [Concomitant]
     Route: 048
  6. PAXIL [Suspect]
     Dosage: 40MG PER DAY
     Route: 048
     Dates: start: 20080613
  7. ANAFRANIL [Concomitant]
     Indication: MAJOR DEPRESSION
     Dosage: 25MG PER DAY
     Route: 042
     Dates: start: 20080606, end: 20080608
  8. PURSENNID [Concomitant]
     Indication: CONSTIPATION
     Dosage: 24MG PER DAY
     Route: 048
  9. PAXIL [Suspect]
     Indication: MAJOR DEPRESSION
     Dosage: 20MG PER DAY
     Route: 048
     Dates: start: 20080610, end: 20080612
  10. POLYFUL [Concomitant]
     Indication: CONSTIPATION
     Dosage: 1500MG PER DAY
     Route: 048
     Dates: start: 20080514
  11. DILTIAZEM HCL [Concomitant]
     Route: 065
  12. AMOXAPINE [Concomitant]
     Dosage: 100MG PER DAY
     Route: 048
  13. PAXIL [Suspect]
     Route: 048
     Dates: start: 20080601, end: 20080623
  14. AMOXAPINE [Concomitant]
     Indication: MAJOR DEPRESSION
     Route: 048

REACTIONS (6)
  - MALAISE [None]
  - ASTHENIA [None]
  - BLOOD SODIUM DECREASED [None]
  - INAPPROPRIATE ANTIDIURETIC HORMONE SECRETION [None]
  - BLOOD OSMOLARITY DECREASED [None]
  - DIZZINESS [None]
